FAERS Safety Report 24227315 (Version 2)
Quarter: 2024Q3

REPORT INFORMATION
  Report Type: Spontaneous
  Country: US (occurrence: US)
  Receive Date: 20240820
  Receipt Date: 20240827
  Transmission Date: 20241017
  Serious: Yes (Life-Threatening, Hospitalization, Other)
  Sender: RECKITT BENCKISER
  Company Number: US-Indivior Limited-SV-MMM-L1H95CDK

PATIENT

DRUGS (2)
  1. SUBLOCADE [Suspect]
     Active Substance: BUPRENORPHINE
     Indication: Drug dependence
     Dosage: 300 MILLIGRAM, QMO
     Route: 058
     Dates: start: 202302
  2. SUBLOCADE [Suspect]
     Active Substance: BUPRENORPHINE
     Dosage: 300 MILLIGRAM, QMO
     Route: 058
     Dates: start: 20240314

REACTIONS (9)
  - Embolism arterial [Not Recovered/Not Resolved]
  - Sepsis [Unknown]
  - Cardiovascular disorder [Not Recovered/Not Resolved]
  - Scar [Not Recovered/Not Resolved]
  - Presyncope [Unknown]
  - Tremor [Unknown]
  - Venous occlusion [Unknown]
  - Injection site infection [Not Recovered/Not Resolved]
  - Drug dependence [Unknown]

NARRATIVE: CASE EVENT DATE: 20240101
